FAERS Safety Report 14034299 (Version 4)
Quarter: 2018Q1

REPORT INFORMATION
  Report Type: Report from Study
  Country: US (occurrence: US)
  Receive Date: 20171003
  Receipt Date: 20180309
  Transmission Date: 20180508
  Serious: Yes (Life-Threatening, Hospitalization)
  Sender: FDA-Public Use
  Company Number: US-PFIZER INC-2017420261

PATIENT
  Age: 16 Year
  Sex: Male
  Weight: 51 kg

DRUGS (27)
  1. VINCRISTINE SULFATE. [Suspect]
     Active Substance: VINCRISTINE SULFATE
     Dosage: UNK UNK, SINGLE
     Route: 042
     Dates: start: 20170710, end: 20170710
  2. METHOTREXATE SODIUM. [Suspect]
     Active Substance: METHOTREXATE SODIUM
     Dosage: METHOTREXATE INTRAVENOUS,15 MG, SINGLE
     Route: 037
     Dates: start: 20170705, end: 20170705
  3. CALCIUM FOLINATE [Suspect]
     Active Substance: LEUCOVORIN CALCIUM
     Indication: B PRECURSOR TYPE ACUTE LEUKAEMIA
     Dosage: 24 MG, UNK
     Route: 042
     Dates: start: 20170831
  4. PREDNISONE. [Suspect]
     Active Substance: PREDNISONE
     Indication: B PRECURSOR TYPE ACUTE LEUKAEMIA
     Dosage: PREDNISONE TABLET, MG/KG
     Route: 048
  5. CYCLOPHOSPHAMIDE. [Suspect]
     Active Substance: CYCLOPHOSPHAMIDE
     Indication: B PRECURSOR TYPE ACUTE LEUKAEMIA
     Dosage: 1740 MG, SINGLE
     Route: 042
     Dates: start: 20170619, end: 20170619
  6. CYCLOPHOSPHAMIDE. [Suspect]
     Active Substance: CYCLOPHOSPHAMIDE
     Dosage: 1700 MG, SINGLE
     Route: 042
     Dates: start: 20170624, end: 20170624
  7. INCB018424 [Suspect]
     Active Substance: RUXOLITINIB
     Indication: B PRECURSOR TYPE ACUTE LEUKAEMIA
     Dosage: 85 MG, BID
     Route: 048
     Dates: start: 20170619, end: 20170704
  8. VINCRISTINE SULFATE. [Suspect]
     Active Substance: VINCRISTINE SULFATE
     Dosage: UNK UNK, SINGLE
     Dates: start: 20170814, end: 20170814
  9. METHOTREXATE SODIUM. [Suspect]
     Active Substance: METHOTREXATE SODIUM
     Dosage: METHOTREXATE INTRAVENOUS, 15 MG, SINGLE
     Route: 037
     Dates: start: 20170711, end: 20170711
  10. MERCAPTOPURINE. [Suspect]
     Active Substance: MERCAPTOPURINE
     Dosage: 700 MG, WEEKLY
     Route: 048
     Dates: start: 20170724, end: 20170806
  11. MERCAPTOPURINE. [Suspect]
     Active Substance: MERCAPTOPURINE
     Dosage: NOT SPECIFIED
     Dates: start: 20170829, end: 20170906
  12. CYTARABINE. [Suspect]
     Active Substance: CYTARABINE
     Dosage: CYTARABINE INTRAVENOUS, MG/M2, 130 MG, QD
     Route: 058
     Dates: start: 20170731, end: 20170803
  13. CYTARABINE. [Suspect]
     Active Substance: CYTARABINE
     Dosage: CYTARABINE INTRAVENOUS, MG/M2, 130 MG, QD
     Route: 058
     Dates: start: 20170724, end: 20170727
  14. VINCRISTINE SULFATE. [Suspect]
     Active Substance: VINCRISTINE SULFATE
     Dosage: 2 MG, ONCE
     Route: 042
     Dates: start: 20170829
  15. METHOTREXATE SODIUM. [Suspect]
     Active Substance: METHOTREXATE SODIUM
     Indication: B PRECURSOR TYPE ACUTE LEUKAEMIA
     Dosage: METHOTREXATE INTRAVENOUS,15 MG, SINGLE
     Route: 037
     Dates: start: 20170620, end: 20170620
  16. CYTARABINE. [Suspect]
     Active Substance: CYTARABINE
     Indication: B PRECURSOR TYPE ACUTE LEUKAEMIA
     Dosage: CYTARABINE INTRAVENOUS, MG/M2, 130 MG, QD
     Route: 058
     Dates: start: 20170619, end: 20170622
  17. VINCRISTINE SULFATE. [Suspect]
     Active Substance: VINCRISTINE SULFATE
     Indication: B PRECURSOR TYPE ACUTE LEUKAEMIA
     Dosage: UNK UNK, SINGLE
     Route: 042
     Dates: start: 20170703, end: 20170703
  18. VINCRISTINE SULFATE. [Suspect]
     Active Substance: VINCRISTINE SULFATE
     Dosage: UNK UNK, SINGLE
     Route: 042
     Dates: start: 20170807, end: 20170807
  19. INCB018424 [Suspect]
     Active Substance: RUXOLITINIB
     Dosage: 85 MG, BID
     Route: 048
     Dates: start: 20170724, end: 20170806
  20. MERCAPTOPURINE. [Suspect]
     Active Substance: MERCAPTOPURINE
     Indication: B PRECURSOR TYPE ACUTE LEUKAEMIA
     Dosage: 725 MG, WEEKLY
     Route: 048
     Dates: start: 20170619, end: 20170702
  21. PEGASPARGASE [Suspect]
     Active Substance: PEGASPARGASE
     Dosage: PEGASPARGASE INTRAVENOUS, IU/M2, 4200 IU, SINGLE
     Route: 042
     Dates: start: 20170814, end: 20170814
  22. METHOTREXATE SODIUM. [Suspect]
     Active Substance: METHOTREXATE SODIUM
     Dosage: METHOTREXATE INTRAVENOUS,15 MG, SINGLE
     Route: 037
     Dates: start: 20170627, end: 20170627
  23. INCB018424 [Suspect]
     Active Substance: RUXOLITINIB
     Dosage: 80 MG, BID
     Route: 048
     Dates: start: 20170829, end: 20170906
  24. PEGASPARGASE [Suspect]
     Active Substance: PEGASPARGASE
     Indication: B PRECURSOR TYPE ACUTE LEUKAEMIA
     Dosage: PEGASPARGASE INTRAVENOUS, IU/M2, 4350 IU, SINGLE
     Route: 042
     Dates: start: 20170703, end: 20170703
  25. METHOTREXATE SODIUM. [Suspect]
     Active Substance: METHOTREXATE SODIUM
     Dosage: METHOTREXATE INTRAVENOUS, 8150 MG, ONCE
     Route: 042
     Dates: start: 20170829
  26. CYTARABINE. [Suspect]
     Active Substance: CYTARABINE
     Dosage: CYTARABINE INTRAVENOUS, MG/M2, 130 MG, QD
     Route: 058
     Dates: start: 20170626, end: 20170629
  27. DAUNORUBICIN HYDROCHLORIDE. [Suspect]
     Active Substance: DAUNORUBICIN HYDROCHLORIDE
     Indication: B PRECURSOR TYPE ACUTE LEUKAEMIA
     Dosage: NOT SPECIFIED

REACTIONS (4)
  - Decreased appetite [Recovered/Resolved]
  - Neutropenia [Recovered/Resolved]
  - Pyrexia [Recovered/Resolved]
  - Vascular access complication [Recovered/Resolved]

NARRATIVE: CASE EVENT DATE: 20170823
